FAERS Safety Report 9355566 (Version 1)
Quarter: 2013Q2

REPORT INFORMATION
  Report Type: Spontaneous
  Country: JP (occurrence: JP)
  Receive Date: 20130619
  Receipt Date: 20130619
  Transmission Date: 20140414
  Serious: Yes (Other)
  Sender: FDA-Public Use
  Company Number: JP-PFIZER INC-2013182683

PATIENT
  Age: 79 Year
  Sex: Male

DRUGS (2)
  1. LYRICA [Suspect]
     Dosage: 75 MG, 1X/DAY
     Route: 048
     Dates: start: 201305
  2. LYRICA [Suspect]
     Dosage: 75 MG, 2X/DAY, AFTER LUNCH AND AT BEDTIME
     Route: 048

REACTIONS (4)
  - Road traffic accident [Unknown]
  - Dizziness [Unknown]
  - Contusion [Unknown]
  - Somnolence [Unknown]
